FAERS Safety Report 5152600-1 (Version None)
Quarter: 2006Q4

REPORT INFORMATION
  Report Type: 
  Country: None (occurrence: None)
  Receive Date: 20061109
  Receipt Date: 20061031
  Transmission Date: 20070319
  Serious: Yes (Death, Other)
  Sender: FDA-Public Use
  Company Number: US-2006-032853

PATIENT
  Age: 60 Year
  Sex: Male
  Weight: 113 kg

DRUGS (1)
  1. ULTRAVIST 300 [Suspect]
     Indication: COMPUTERISED TOMOGRAM HEAD
     Dosage: 92 ML, 1 DOSE, INTRAVENOUS
     Route: 042
     Dates: start: 20060908, end: 20060908

REACTIONS (3)
  - ANAPHYLACTIC REACTION [None]
  - CONVULSION [None]
  - DEPRESSED LEVEL OF CONSCIOUSNESS [None]
